FAERS Safety Report 9139657 (Version 1)
Quarter: 2013Q1

REPORT INFORMATION
  Report Type: Spontaneous
  Country: US (occurrence: US)
  Receive Date: 20130305
  Receipt Date: 20130305
  Transmission Date: 20140127
  Serious: Yes (Other)
  Sender: FDA-Public Use
  Company Number: US-SANOFI-AVENTIS-2013SA021131

PATIENT
  Age: 67 Year
  Sex: Female

DRUGS (5)
  1. PLAVIX [Suspect]
  2. LOPRESSOR [Concomitant]
  3. PROTONIX [Concomitant]
  4. ZETIA [Concomitant]
  5. ACETYLSALICYLIC ACID [Concomitant]

REACTIONS (2)
  - Hip fracture [Unknown]
  - Contusion [Recovered/Resolved]
